FAERS Safety Report 11714463 (Version 1)
Quarter: 2015Q4

REPORT INFORMATION
  Report Type: Spontaneous
  Country: GB (occurrence: GB)
  Receive Date: 20151109
  Receipt Date: 20151109
  Transmission Date: 20160304
  Serious: Yes (Other)
  Sender: FDA-Public Use
  Company Number: GB-NOVOPROD-468982

PATIENT
  Age: 69 Year
  Sex: Female
  Weight: 53.9 kg

DRUGS (3)
  1. VAGIFEM [Suspect]
     Active Substance: ESTRADIOL
     Indication: OFF LABEL USE
  2. VAGIFEM [Suspect]
     Active Substance: ESTRADIOL
     Indication: MUSCULAR WEAKNESS
     Dosage: 6-8 WEEK COURSE TWICE A YEAR (FOR 3 YEARS)ADR AFTER THIRD COURSE AT THIS DOSE
     Route: 067
  3. CALCIUM [Concomitant]
     Active Substance: CALCIUM
     Dosage: UNK

REACTIONS (6)
  - Hypotonia [Recovering/Resolving]
  - Drug ineffective [Unknown]
  - Vaginal inflammation [Recovering/Resolving]
  - Fatigue [Recovering/Resolving]
  - Vulvovaginal erythema [Recovering/Resolving]
  - Vulvovaginal pain [Recovering/Resolving]

NARRATIVE: CASE EVENT DATE: 201508
